FAERS Safety Report 4836302-4 (Version None)
Quarter: 2005Q4

REPORT INFORMATION
  Report Type: 
  Country: None (occurrence: None)
  Receive Date: 20051118
  Receipt Date: 20051104
  Transmission Date: 20060501
  Serious: Yes (Hospitalization)
  Sender: FDA-Public Use
  Company Number: MEDI-0003766

PATIENT
  Age: 57 Year
  Sex: Male
  Weight: 92.307 kg

DRUGS (7)
  1. ETHYOL [Suspect]
     Indication: CHEMOTHERAPY
     Dosage: 500 MG, 5 IN 1 WK, SUBCUTANEOUS
     Route: 058
     Dates: start: 20051012, end: 20051024
  2. ETHYOL [Suspect]
     Indication: RADIOTHERAPY
     Dosage: 500 MG, 5 IN 1 WK, SUBCUTANEOUS
     Route: 058
     Dates: start: 20051012, end: 20051024
  3. RADIATION THERAPY [Concomitant]
  4. CARBOPLATIN [Concomitant]
  5. TAXOL [Concomitant]
  6. COMPAZINE [Concomitant]
  7. ZOFRAN [Concomitant]

REACTIONS (15)
  - ANAPHYLACTIC SHOCK [None]
  - ARTHRALGIA [None]
  - BRADYCARDIA [None]
  - CHILLS [None]
  - DIZZINESS [None]
  - DYSPNOEA [None]
  - HEADACHE [None]
  - HYPOTENSION [None]
  - INJECTION SITE ERYTHEMA [None]
  - MALAISE [None]
  - PHARYNGOLARYNGEAL PAIN [None]
  - PYREXIA [None]
  - RASH [None]
  - RASH PRURITIC [None]
  - SKIN LESION [None]
